FAERS Safety Report 10457556 (Version 1)
Quarter: 2014Q3

REPORT INFORMATION
  Report Type: Spontaneous
  Country: US (occurrence: US)
  Receive Date: 20140916
  Receipt Date: 20140916
  Transmission Date: 20150326
  Serious: Yes (Other)
  Sender: FDA-Public Use
  Company Number: PHHY2014US117136

PATIENT
  Age: 4 Year
  Sex: Male

DRUGS (7)
  1. TOPIRAMATE. [Suspect]
     Active Substance: TOPIRAMATE
  2. CLOBAZAM [Suspect]
     Active Substance: CLOBAZAM
  3. IMMUNOGLOBULIN I.V [Concomitant]
     Active Substance: HUMAN IMMUNOGLOBULIN G
     Route: 042
  4. VALPROIC ACID. [Suspect]
     Active Substance: VALPROIC ACID
  5. LACOSAMIDE [Concomitant]
     Active Substance: LACOSAMIDE
  6. OXCARBAZEPINE. [Suspect]
     Active Substance: OXCARBAZEPINE
  7. CLONAZEPAM. [Suspect]
     Active Substance: CLONAZEPAM

REACTIONS (5)
  - Partial seizures with secondary generalisation [Unknown]
  - Gait disturbance [Unknown]
  - Rasmussen encephalitis [Unknown]
  - Asthenia [Unknown]
  - Ataxia [Unknown]
